FAERS Safety Report 7226829-2 (Version None)
Quarter: 2011Q1

REPORT INFORMATION
  Report Type: 
  Country: None (occurrence: None)
  Receive Date: 20110110
  Receipt Date: 20110110
  Transmission Date: 20110831
  Serious: Yes (Other)
  Sender: FDA-Public Use
  Company Number: None

PATIENT
  Age: 66 Year
  Sex: Male
  Weight: 101.6 kg

DRUGS (2)
  1. PRASUGREL [Suspect]
     Indication: DERMATITIS ALLERGIC
     Dosage: 10 MG EVERY DAY PO
     Route: 048
     Dates: start: 20101024, end: 20101025
  2. CLOPIDOGREL [Suspect]
     Indication: DERMATITIS ALLERGIC
     Dosage: 75MG MG EVERY DAY PO
     Route: 048
     Dates: start: 20101021, end: 20101023

REACTIONS (1)
  - RASH [None]
